FAERS Safety Report 10417051 (Version 3)
Quarter: 2014Q3

REPORT INFORMATION
  Report Type: Spontaneous
  Country: GB (occurrence: GB)
  Receive Date: 20140828
  Receipt Date: 20140925
  Transmission Date: 20150326
  Serious: Yes (Life-Threatening)
  Sender: FDA-Public Use
  Company Number: PHHY2014GB104931

PATIENT
  Age: 65 Year
  Sex: Female
  Weight: 99 kg

DRUGS (7)
  1. AZATHIOPRINE. [Concomitant]
     Active Substance: AZATHIOPRINE
     Indication: LIVER TRANSPLANT
     Dosage: 50 MG, QD
     Route: 065
     Dates: start: 20110620
  2. LANTUS [Concomitant]
     Active Substance: INSULIN GLARGINE
     Indication: TYPE 2 DIABETES MELLITUS
     Dosage: 24 U, (24 DAILY; 1 DOSE AT TEA TIME)
     Route: 065
     Dates: start: 20090101
  3. NOVORAPID [Concomitant]
     Active Substance: INSULIN ASPART
     Indication: TYPE 2 DIABETES MELLITUS
     Dosage: 24 U, (24 DAILY)
     Route: 065
     Dates: start: 20090101
  4. OMEPRAZOLE. [Concomitant]
     Active Substance: OMEPRAZOLE
     Indication: GASTRIC DISORDER
     Dosage: 20 MG, BID
     Route: 065
     Dates: start: 20111120
  5. PROGRAF [Suspect]
     Active Substance: TACROLIMUS\TACROLIMUS ANHYDROUS
     Indication: LIVER TRANSPLANT
     Dosage: 0.5 MG, BID (1 MILLIGRAM DAILY)
     Route: 065
     Dates: start: 201112
  6. SUMATRIPTAN [Suspect]
     Active Substance: SUMATRIPTAN
     Indication: HEADACHE
     Dosage: 50 MG, (PATIENT TAKES 1 TABLET MOST DAYS)
  7. EZETROL [Concomitant]
     Active Substance: EZETIMIBE
     Indication: BLOOD CHOLESTEROL
     Dosage: 10 MG, QD
     Route: 065

REACTIONS (2)
  - Weight increased [Unknown]
  - Increased appetite [Unknown]

NARRATIVE: CASE EVENT DATE: 201111
